FAERS Safety Report 5290420-8 (Version None)
Quarter: 2007Q2

REPORT INFORMATION
  Report Type: 
  Country: None (occurrence: None)
  Receive Date: 20070404
  Receipt Date: 20070404
  Transmission Date: 20071010
  Serious: No
  Sender: FDA-Public Use
  Company Number: None

PATIENT
  Sex: Male

DRUGS (2)
  1. DEPAKOTE [Suspect]
     Dosage: CAPSULE, DELAYED RELEASE PELLETS  BOTTLE 100
  2. DEPAKOTE ER [Suspect]
     Dosage: TABLET, EXTENDED RELEASE  BOTTLE 100

REACTIONS (4)
  - ABNORMAL BEHAVIOUR [None]
  - DRUG DISPENSING ERROR [None]
  - INCORRECT DOSE ADMINISTERED [None]
  - MEDICATION ERROR [None]
